FAERS Safety Report 21554597 (Version 7)
Quarter: 2023Q1

REPORT INFORMATION
  Report Type: Report from Study
  Country: GR (occurrence: GR)
  Receive Date: 20221104
  Receipt Date: 20230314
  Transmission Date: 20230418
  Serious: Yes (Hospitalization, Other)
  Sender: FDA-Public Use
  Company Number: GR-ABBVIE-4187168

PATIENT
  Age: 76 Year
  Sex: Female
  Weight: 75 kg

DRUGS (2)
  1. CARBIDOPA\LEVODOPA [Suspect]
     Active Substance: CARBIDOPA\LEVODOPA
     Indication: Parkinson^s disease
     Dosage: MORNING DOSE: 8.2 ML; CONTINUOUS RATE: 3.1 ML/H; EXTRA DOSE: 1.3 ML
     Route: 050
     Dates: start: 20211109
  2. CARBIDOPA\LEVODOPA [Suspect]
     Active Substance: CARBIDOPA\LEVODOPA
     Dosage: MORNING DOSE: 8.2 ML; CONTINUOUS RATE: 3.1 ML/H; EXTRA DOSE: 1.3 ML
     Route: 050

REACTIONS (8)
  - Head injury [Unknown]
  - Fall [Recovered/Resolved]
  - Intracranial haematoma [Recovered/Resolved]
  - Epilepsy [Not Recovered/Not Resolved]
  - Epilepsy [Recovered/Resolved]
  - Delayed recovery from anaesthesia [Unknown]
  - Epilepsy [Recovered/Resolved]
  - Unevaluable event [Unknown]

NARRATIVE: CASE EVENT DATE: 20221001
